FAERS Safety Report 9481888 (Version 3)
Quarter: 2013Q3

REPORT INFORMATION
  Report Type: Spontaneous
  Country: US (occurrence: US)
  Receive Date: 20130828
  Receipt Date: 20130906
  Transmission Date: 20140515
  Serious: No
  Sender: FDA-Public Use
  Company Number: US-009507513-1308USA010330

PATIENT
  Age: 49 Year
  Sex: Female
  Weight: 60.14 kg

DRUGS (3)
  1. PROVENTIL [Suspect]
     Indication: ASTHMA
     Dosage: TWO PUFFS EVERY 4-6 HOURS AS NEEDED
     Route: 055
     Dates: start: 20130711
  2. LORCET [Suspect]
     Dosage: UNKNOWN
  3. QVAR [Concomitant]
     Dosage: UNKNOWN

REACTIONS (5)
  - Dyspnoea [Not Recovered/Not Resolved]
  - Dizziness [Unknown]
  - Nausea [Unknown]
  - Drug dose omission [Unknown]
  - Product quality issue [Unknown]
